FAERS Safety Report 23769026 (Version 4)
Quarter: 2025Q1

REPORT INFORMATION
  Report Type: Report from Study
  Country: US (occurrence: US)
  Receive Date: 20240422
  Receipt Date: 20250103
  Transmission Date: 20250409
  Serious: Yes (Other)
  Sender: BAYER HEALTHCARE PHARMACEUTICALS INC.
  Company Number: US-BAYER-2024A053948

PATIENT
  Age: 45 Year
  Sex: Male

DRUGS (4)
  1. NUBEQA [Suspect]
     Active Substance: DAROLUTAMIDE
  2. ORGOVYX [Suspect]
     Active Substance: RELUGOLIX
     Indication: Prostate cancer
     Dosage: 120 MG, QD
     Route: 048
     Dates: start: 20240325
  3. DOCETAXEL [Suspect]
     Active Substance: DOCETAXEL
  4. BICALUTAMIDE [Suspect]
     Active Substance: BICALUTAMIDE

REACTIONS (12)
  - Blood alkaline phosphatase increased [Unknown]
  - White blood cell count decreased [Recovering/Resolving]
  - Cardiac flutter [Unknown]
  - Hot flush [Recovered/Resolved]
  - Blood sodium decreased [None]
  - Blood calcium decreased [None]
  - Asthenia [Unknown]
  - Inappropriate schedule of product administration [None]
  - Feeling hot [Unknown]
  - Gingival blister [Recovering/Resolving]
  - Gingival pain [Recovering/Resolving]
  - Injection site rash [Unknown]
